FAERS Safety Report 9752505 (Version 1)
Quarter: 2013Q4

REPORT INFORMATION
  Report Type: Report from Study
  Country: GB (occurrence: GB)
  Receive Date: 20131213
  Receipt Date: 20131213
  Transmission Date: 20140711
  Serious: Yes (Hospitalization)
  Sender: FDA-Public Use
  Company Number: GB-MERCK-1312GBR004450

PATIENT
  Age: 76 Year
  Sex: Male
  Weight: 92.8 kg

DRUGS (8)
  1. VORINOSTAT [Suspect]
     Indication: ACUTE MYELOID LEUKAEMIA
     Dosage: 300 MG, BID CYCLE 1
     Route: 048
     Dates: start: 20130709, end: 20130806
  2. AZACITIDINE [Suspect]
     Indication: ACUTE MYELOID LEUKAEMIA
     Dosage: 145 MG, QD CYCLE 1
     Route: 058
     Dates: start: 20130729, end: 20130806
  3. ALLOPURINOL [Concomitant]
     Indication: GOUT
     Dosage: UNK
     Dates: start: 2003
  4. CLOPIDOGREL [Concomitant]
     Indication: TRANSIENT ISCHAEMIC ATTACK
     Dosage: UNK
     Dates: start: 2011
  5. RANITIDINE [Concomitant]
  6. SIMVASTATIN [Concomitant]
     Indication: HYPERCHOLESTEROLAEMIA
     Dosage: UNK
     Dates: start: 2008
  7. ALBUTEROL [Concomitant]
     Indication: BRONCHIECTASIS
     Dosage: UNK
     Dates: start: 2008
  8. SYMBICORT [Concomitant]
     Indication: BRONCHIECTASIS

REACTIONS (3)
  - Diarrhoea [Recovered/Resolved]
  - Dehydration [Recovered/Resolved]
  - Hypertension [Recovered/Resolved]
